FAERS Safety Report 6917976-0 (Version None)
Quarter: 2010Q3

REPORT INFORMATION
  Report Type: 
  Country: None (occurrence: None)
  Receive Date: 20100810
  Receipt Date: 20090921
  Transmission Date: 20110219
  Serious: Yes (Other)
  Sender: FDA-Public Use
  Company Number: US-PFIZER INC-2009213639

PATIENT
  Sex: Male
  Weight: 97.506 kg

DRUGS (6)
  1. TOVIAZ [Suspect]
     Indication: INCONTINENCE
     Dosage: 4 MG, 1X/DAY
     Route: 048
     Dates: start: 20090511, end: 20090101
  2. TOVIAZ [Suspect]
     Indication: HYPERTONIC BLADDER
  3. TOVIAZ [Suspect]
     Indication: PROSTATE CANCER
  4. LIPITOR [Concomitant]
     Dosage: 10 MG, 1X/DAY
  5. ACETYLSALICYLIC ACID [Concomitant]
     Dosage: 325 MG, 1X/DAY
  6. ALBUTEROL [Concomitant]
     Dosage: UNK

REACTIONS (1)
  - EYE HAEMORRHAGE [None]
